FAERS Safety Report 4371679-8 (Version None)
Quarter: 2004Q2

REPORT INFORMATION
  Report Type: 
  Country: None (occurrence: None)
  Receive Date: 20040602
  Receipt Date: 20040519
  Transmission Date: 20050107
  Serious: Yes (Hospitalization)
  Sender: FDA-Public Use
  Company Number: GB-JNJFOC-20040304009

PATIENT
  Age: 15 Year
  Sex: Female

DRUGS (24)
  1. INFLIXIMAB (INFLIXIMAB, RECOMBINANT) LYOPHILIZED POWDER [Suspect]
     Indication: CROHN'S DISEASE
     Dosage: INTRAVENOUS
     Route: 042
     Dates: start: 20040218
  2. INFLIXIMAB (INFLIXIMAB, RECOMBINANT) LYOPHILIZED POWDER [Suspect]
     Indication: CROHN'S DISEASE
     Dosage: INTRAVENOUS
     Route: 042
     Dates: start: 20040302
  3. CIPROFLOXACIN [Concomitant]
  4. METRONIDAZOLE [Concomitant]
  5. PREDNISOLONE [Concomitant]
  6. TRAMADOL HCL [Concomitant]
  7. PENTASA [Concomitant]
  8. TOTAL PARENTERAL NUTRITION (POLYVINYL ALCOHOL) [Concomitant]
  9. ACETAMINOPHEN [Concomitant]
  10. CEFTRIAXONE [Concomitant]
  11. HYDOCORTISONE (HYDROCORTISONE) [Concomitant]
  12. FURSEMIDE (FUROSEMIDE) [Concomitant]
  13. MORPHINE SUL INJ [Concomitant]
  14. DIAMORPHINE (DIAMORPHINE) [Concomitant]
  15. DICLOFENAC (CIDLOFENAC) [Concomitant]
  16. CYCLIZINE (CYCLIZINE) [Concomitant]
  17. ONDANSETRON (ONDSANSETRON) [Concomitant]
  18. OROMORPH (MORPHINE SULFATE) [Concomitant]
  19. FENTANYL [Concomitant]
  20. PROPOFOL [Concomitant]
  21. VECURONIUM (VECURONIUM) [Concomitant]
  22. NEOSTIGMINE (NEOSTIGMINE) [Concomitant]
  23. GLYCOPYROLATE (GLYCOPYRRONIUM BROMIDE) [Concomitant]
  24. BUPIVACAINE [Concomitant]

REACTIONS (8)
  - ANAL FISTULA [None]
  - CROHN'S DISEASE [None]
  - IMPAIRED HEALING [None]
  - POSTOPERATIVE INFECTION [None]
  - POSTOPERATIVE WOUND COMPLICATION [None]
  - PYREXIA [None]
  - RENAL FAILURE CHRONIC [None]
  - STOMA SITE REACTION [None]
